FAERS Safety Report 25125824 (Version 1)
Quarter: 2025Q1

REPORT INFORMATION
  Report Type: Spontaneous
  Country: US (occurrence: US)
  Receive Date: 20250326
  Receipt Date: 20250326
  Transmission Date: 20250408
  Serious: No
  Sender: MERCK SHARP & DOHME LLC
  Company Number: US-009507513-2266295

PATIENT
  Sex: Female
  Weight: 59 kg

DRUGS (24)
  1. SOTATERCEPT [Suspect]
     Active Substance: SOTATERCEPT
     Indication: Product used for unknown indication
  2. SOTATERCEPT [Suspect]
     Active Substance: SOTATERCEPT
  3. SOTATERCEPT [Suspect]
     Active Substance: SOTATERCEPT
  4. SOTATERCEPT [Suspect]
     Active Substance: SOTATERCEPT
  5. ORENITRAM [Suspect]
     Active Substance: TREPROSTINIL
     Indication: Pulmonary arterial hypertension
     Route: 048
     Dates: start: 20220721
  6. ORENITRAM [Suspect]
     Active Substance: TREPROSTINIL
     Indication: Pulmonary arterial hypertension
     Route: 048
  7. TADALAFIL [Concomitant]
     Active Substance: TADALAFIL
  8. POTASSIUM CHLORIDE [Concomitant]
     Active Substance: POTASSIUM CHLORIDE
  9. METOPROLOL TARTRATE [Concomitant]
     Active Substance: METOPROLOL TARTRATE
  10. OMEPRAZOLE [Concomitant]
     Active Substance: OMEPRAZOLE
  11. PERCOCET [Concomitant]
     Active Substance: ACETAMINOPHEN\OXYCODONE HYDROCHLORIDE
  12. TERCONAZOLE [Concomitant]
     Active Substance: TERCONAZOLE
  13. TYLENOL [Concomitant]
     Active Substance: ACETAMINOPHEN
  14. SPIRONOLACTONE [Concomitant]
     Active Substance: SPIRONOLACTONE
  15. CELEXA [Concomitant]
     Active Substance: CITALOPRAM HYDROBROMIDE
  16. GUAIFENESIN [Concomitant]
     Active Substance: GUAIFENESIN
  17. TRACLEER [Concomitant]
     Active Substance: BOSENTAN
  18. NORETHINDRONE [Concomitant]
     Active Substance: NORETHINDRONE
  19. OXYGEN [Concomitant]
     Active Substance: OXYGEN
  20. CHLORTHALIDONE [Concomitant]
     Active Substance: CHLORTHALIDONE
  21. MIDODRINE HYDROCHLORIDE [Concomitant]
     Active Substance: MIDODRINE HYDROCHLORIDE
  22. DIFLUCAN [Concomitant]
     Active Substance: FLUCONAZOLE
  23. CYCLOBENZAPRINE HYDROCHLORIDE [Concomitant]
     Active Substance: CYCLOBENZAPRINE HYDROCHLORIDE
  24. PHENAZOPYRIDINE HCL [Concomitant]
     Active Substance: PHENAZOPYRIDINE HYDROCHLORIDE

REACTIONS (1)
  - Diarrhoea [Not Recovered/Not Resolved]
